FAERS Safety Report 22620682 (Version 1)
Quarter: 2023Q2

REPORT INFORMATION
  Report Type: Report from Study
  Country: US (occurrence: US)
  Receive Date: 20230620
  Receipt Date: 20230620
  Transmission Date: 20230722
  Serious: Yes (Hospitalization, Other)
  Sender: FDA-Public Use
  Company Number: US-ABBVIE-5295968

PATIENT
  Age: 69 Year
  Sex: Female

DRUGS (1)
  1. HUMIRA [Suspect]
     Active Substance: ADALIMUMAB
     Indication: Product used for unknown indication
     Route: 058

REACTIONS (7)
  - Depression [Unknown]
  - Erythema [Not Recovered/Not Resolved]
  - Fall [Unknown]
  - Bronchitis [Unknown]
  - Cerebral haemorrhage [Unknown]
  - Spinal fracture [Unknown]
  - Concussion [Unknown]

NARRATIVE: CASE EVENT DATE: 20230428
